FAERS Safety Report 5400331-2 (Version None)
Quarter: 2007Q3

REPORT INFORMATION
  Report Type: 
  Country: None (occurrence: None)
  Receive Date: 20070730
  Receipt Date: 20070724
  Transmission Date: 20080115
  Serious: Yes (Death)
  Sender: FDA-Public Use
  Company Number: A0652643A

PATIENT
  Age: 54 Year
  Sex: Female

DRUGS (18)
  1. TYKERB [Suspect]
     Indication: BREAST CANCER
     Dosage: 5TAB PER DAY
     Route: 048
     Dates: start: 20070330
  2. XELODA [Concomitant]
  3. OXYGEN [Concomitant]
  4. NEURONTIN [Concomitant]
  5. B6 [Concomitant]
  6. ZYRTEC [Concomitant]
  7. CELEXA [Concomitant]
  8. BENECOL [Concomitant]
  9. DIGOXIN [Concomitant]
  10. LASIX [Concomitant]
  11. COUMADIN [Concomitant]
  12. DILTIAZEM [Concomitant]
  13. XANAX [Concomitant]
  14. AMBIEN [Concomitant]
  15. FLEXERIL [Concomitant]
  16. PHENERGAN HCL [Concomitant]
  17. LORA TAB [Concomitant]
  18. ADVAIR DISKUS 100/50 [Concomitant]

REACTIONS (6)
  - DEATH [None]
  - DIARRHOEA [None]
  - FATIGUE [None]
  - LIVEDO RETICULARIS [None]
  - NAUSEA [None]
  - PALMAR-PLANTAR ERYTHRODYSAESTHESIA SYNDROME [None]
